FAERS Safety Report 6386112-4 (Version None)
Quarter: 2009Q4

REPORT INFORMATION
  Report Type: 
  Country: None (occurrence: None)
  Receive Date: 20091002
  Receipt Date: 20081202
  Transmission Date: 20100525
  Serious: No
  Sender: FDA-Public Use
  Company Number: US-ASTRAZENECA-2008UW26891

PATIENT
  Age: 58 Year
  Sex: Female
  Weight: 77.1 kg

DRUGS (4)
  1. ARIMIDEX [Suspect]
     Indication: NEOPLASM MALIGNANT
     Route: 048
     Dates: start: 20050101
  2. CALCIUM [Concomitant]
  3. VITAMIN D [Concomitant]
  4. PRAVASTATIN [Concomitant]

REACTIONS (3)
  - INCREASED APPETITE [None]
  - TREATMENT NONCOMPLIANCE [None]
  - WEIGHT INCREASED [None]
